FAERS Safety Report 8999932 (Version 1)
Quarter: 2013Q1

REPORT INFORMATION
  Report Type: Spontaneous
  Country: US (occurrence: US)
  Receive Date: 20130102
  Receipt Date: 20130102
  Transmission Date: 20140127
  Serious: Yes (Death)
  Sender: FDA-Public Use
  Company Number: US-PFIZER INC-2012330367

PATIENT
  Age: 27 Month
  Sex: Male
  Weight: 11.26 kg

DRUGS (5)
  1. GENOTROPIN MQ [Suspect]
     Indication: PRADER-WILLI SYNDROME
     Dosage: 0.2 MG, 1X/DAY
     Route: 058
     Dates: start: 20110329
  2. GENOTROPIN MQ [Suspect]
     Dosage: 0.2 MG ALTERNATING WITH 0.4MG EVERY OTHER DAY
     Route: 058
  3. DRISDOL [Concomitant]
     Indication: SUPPLEMENTATION THERAPY
     Dosage: UNK
  4. FLONASE [Concomitant]
     Indication: RESPIRATORY DISORDER
     Dosage: UNK
  5. SINGULAIR [Concomitant]
     Indication: RESPIRATORY DISORDER
     Dosage: UNK

REACTIONS (1)
  - Death [Fatal]
